FAERS Safety Report 10433515 (Version 1)
Quarter: 2014Q3

REPORT INFORMATION
  Report Type: Spontaneous
  Country: US (occurrence: None)
  Receive Date: 20140815
  Receipt Date: 20140815
  Transmission Date: 20150326
  Serious: No
  Sender: FDA-Public Use
  Company Number: A-NJ2014-97926

PATIENT
  Age: 65 Year
  Sex: Female

DRUGS (2)
  1. SILDENAFIL [Concomitant]
     Active Substance: SILDENAFIL
  2. OPSUMIT [Suspect]
     Active Substance: MACITENTAN
     Indication: SYSTEMIC SCLEROSIS
     Route: 048
     Dates: start: 20131211

REACTIONS (1)
  - Drug ineffective [None]
